FAERS Safety Report 5052741-3 (Version None)
Quarter: 2006Q3

REPORT INFORMATION
  Report Type: 
  Country: None (occurrence: None)
  Receive Date: 20060717
  Receipt Date: 20060619
  Transmission Date: 20061208
  Serious: Yes (Death, Hospitalization)
  Sender: FDA-Public Use
  Company Number: US-GILEAD-2006-0009758

PATIENT
  Sex: Male
  Weight: 46.308 kg

DRUGS (7)
  1. TRUVADA [Suspect]
     Indication: HIV INFECTION
     Route: 048
     Dates: start: 20060119, end: 20060616
  2. REYATAZ [Concomitant]
     Indication: HIV INFECTION
     Route: 048
     Dates: start: 20060119, end: 20060616
  3. NORVIR [Concomitant]
     Indication: HIV INFECTION
     Route: 048
     Dates: start: 20060119, end: 20060616
  4. BACTRIM DS [Concomitant]
     Indication: ANTIBIOTIC PROPHYLAXIS
     Dates: start: 20060119
  5. ZITHROMAX [Concomitant]
     Indication: MYCOBACTERIUM AVIUM COMPLEX INFECTION
     Dates: start: 20060119
  6. ETHAMBUTOL HCL [Concomitant]
     Indication: MYCOBACTERIUM AVIUM COMPLEX INFECTION
     Dates: start: 20060215, end: 20060617
  7. BIAXIN [Concomitant]
     Indication: MYCOBACTERIUM AVIUM COMPLEX INFECTION
     Dates: start: 20060307

REACTIONS (4)
  - ABDOMINAL DISTENSION [None]
  - CARDIAC ARREST [None]
  - GENERAL PHYSICAL HEALTH DETERIORATION [None]
  - LACTIC ACIDOSIS [None]
